FAERS Safety Report 21003863 (Version 6)
Quarter: 2022Q4

REPORT INFORMATION
  Report Type: Report from Study
  Country: CN (occurrence: None)
  Receive Date: 20220624
  Receipt Date: 20221015
  Transmission Date: 20230112
  Serious: Yes (Hospitalization)
  Sender: FDA-Public Use
  Company Number: CN-ROCHE-3122346

PATIENT
  Age: 52 Year
  Sex: Male
  Weight: 74 kg

DRUGS (29)
  1. ATEZOLIZUMAB [Suspect]
     Active Substance: ATEZOLIZUMAB
     Indication: Hepatocellular carcinoma
     Dosage: ON 25/AUG/2021, MOST RECENT DOSE OF ATEZOLIZUMAB WAS ADMINISTERED PRIOR TO ADVERSE EVENT.
     Route: 041
     Dates: start: 20210527
  2. BEVACIZUMAB [Suspect]
     Active Substance: BEVACIZUMAB
     Indication: Hepatocellular carcinoma
     Dosage: ON 25/AUG/2021, MOST RECENT DOSE OF BEVACIZUMAB WAS ADMINISTERED PRIOR TO ADVERSE EVENT.
     Route: 042
     Dates: start: 20210527
  3. ENTECAVIR [Concomitant]
     Active Substance: ENTECAVIR
     Indication: Antiviral treatment
     Dates: start: 20210511
  4. BICYCLOL [Concomitant]
     Active Substance: BICYCLOL
     Dates: start: 20210625
  5. HERBALS\DIAMMONIUM GLYCYRRHIZINATE [Concomitant]
     Active Substance: HERBALS\DIAMMONIUM GLYCYRRHIZINATE
     Dosage: ENTERIC COATED CAPSULES
     Dates: start: 20210625
  6. HERBALS\DIAMMONIUM GLYCYRRHIZINATE [Concomitant]
     Active Substance: HERBALS\DIAMMONIUM GLYCYRRHIZINATE
     Dates: start: 20210914, end: 20210924
  7. EUTHYROX [Concomitant]
     Active Substance: LEVOTHYROXINE SODIUM
     Dates: start: 20210825, end: 20211027
  8. EUTHYROX [Concomitant]
     Active Substance: LEVOTHYROXINE SODIUM
     Dates: start: 20210825
  9. LEVOFLOXACIN MESILATE [Concomitant]
     Indication: Infection prophylaxis
     Dates: start: 20210914, end: 20210924
  10. SODIUM CHLORIDE [Concomitant]
     Active Substance: SODIUM CHLORIDE
     Dates: start: 20210914, end: 20210924
  11. PSEUDOMONAS AERUGINOSA [Concomitant]
     Dates: start: 20210914, end: 20210924
  12. HERBALS\DIAMMONIUM GLYCYRRHIZINATE [Concomitant]
     Active Substance: HERBALS\DIAMMONIUM GLYCYRRHIZINATE
     Dates: start: 20210914, end: 20210924
  13. DEXAMETHASONE SODIUM PHOSPHATE [Concomitant]
     Active Substance: DEXAMETHASONE SODIUM PHOSPHATE
     Route: 042
     Dates: start: 20210916, end: 20210918
  14. ILAPRAZOLE [Concomitant]
     Active Substance: ILAPRAZOLE
     Dosage: ENTERIC COATED TABLET
     Dates: start: 20210916, end: 20210924
  15. HYDROTALCITE [Concomitant]
     Active Substance: HYDROTALCITE
     Dosage: CHEWABLE TABLETS
     Dates: start: 20210916, end: 20210918
  16. TORSEMIDE [Concomitant]
     Active Substance: TORSEMIDE
     Dates: start: 20210914, end: 20210914
  17. TORSEMIDE [Concomitant]
     Active Substance: TORSEMIDE
     Dates: start: 20210915, end: 20210915
  18. TORSEMIDE [Concomitant]
     Active Substance: TORSEMIDE
     Dates: start: 20210916, end: 20210916
  19. TORSEMIDE [Concomitant]
     Active Substance: TORSEMIDE
     Dates: start: 20210917, end: 20210922
  20. TORSEMIDE [Concomitant]
     Active Substance: TORSEMIDE
     Dates: start: 20210923, end: 20210924
  21. HEPARIN SODIUM [Concomitant]
     Active Substance: HEPARIN SODIUM
     Indication: Anticoagulant therapy
     Dates: start: 20210914, end: 20210929
  22. HEPARIN SODIUM [Concomitant]
     Active Substance: HEPARIN SODIUM
     Dates: start: 20210916, end: 20210918
  23. HEPARIN SODIUM [Concomitant]
     Active Substance: HEPARIN SODIUM
     Dates: start: 20210919, end: 20210929
  24. LIDOCAINE HYDROCHLORIDE [Concomitant]
     Active Substance: LIDOCAINE HYDROCHLORIDE
     Dates: start: 20210914, end: 20210914
  25. AVATROMBOPAG [Concomitant]
     Active Substance: AVATROMBOPAG
     Dates: start: 20211210, end: 20211217
  26. UBENIMEX [Concomitant]
     Active Substance: UBENIMEX
     Dates: start: 20211019, end: 20211027
  27. RIVAROXABAN [Concomitant]
     Active Substance: RIVAROXABAN
     Indication: Anticoagulant therapy
     Dates: start: 20211102, end: 20211123
  28. NADROPARIN CALCIUM [Concomitant]
     Active Substance: NADROPARIN CALCIUM
     Indication: Anticoagulant therapy
     Dates: start: 20211019, end: 20211019
  29. NADROPARIN CALCIUM [Concomitant]
     Active Substance: NADROPARIN CALCIUM
     Dates: start: 20211206, end: 202112

REACTIONS (1)
  - Ascites [Recovered/Resolved with Sequelae]

NARRATIVE: CASE EVENT DATE: 20210901
